FAERS Safety Report 6508106-8 (Version None)
Quarter: 2009Q4

REPORT INFORMATION
  Report Type: 
  Country: None (occurrence: None)
  Receive Date: 20091221
  Receipt Date: 20091216
  Transmission Date: 20100525
  Serious: Yes (Other)
  Sender: FDA-Public Use
  Company Number: US-JNJFOC-20091205228

PATIENT
  Sex: Male

DRUGS (2)
  1. INVEGA [Suspect]
     Indication: PSYCHOTIC DISORDER
     Route: 048
  2. INVEGA [Suspect]
     Route: 048

REACTIONS (2)
  - DYSKINESIA [None]
  - TARDIVE DYSKINESIA [None]
